FAERS Safety Report 7516923-0 (Version None)
Quarter: 2011Q2

REPORT INFORMATION
  Report Type: 
  Country: None (occurrence: None)
  Receive Date: 20110526
  Receipt Date: 20110526
  Transmission Date: 20111010
  Serious: Yes (Other)
  Sender: FDA-Public Use
  Company Number: None

PATIENT
  Age: 44 Year
  Sex: Female
  Weight: 63.5036 kg

DRUGS (1)
  1. AVELOX [Suspect]
     Indication: DACRYOCYSTITIS
     Dosage: 400MG DAILY X 10 DAYS PO
     Route: 048
     Dates: start: 20110514, end: 20110520

REACTIONS (3)
  - CONTRAINDICATION TO MEDICAL TREATMENT [None]
  - TENDON PAIN [None]
  - TOOTH DISCOLOURATION [None]
